FAERS Safety Report 10241414 (Version 2)
Quarter: 2014Q2

REPORT INFORMATION
  Report Type: Report from Study
  Country: TW (occurrence: TW)
  Receive Date: 20140617
  Receipt Date: 20140620
  Transmission Date: 20141212
  Serious: Yes (Life-Threatening, Hospitalization, Other)
  Sender: FDA-Public Use
  Company Number: TW-SA-2014SA068399

PATIENT
  Age: 54 Year
  Sex: Male
  Weight: 50 kg

DRUGS (8)
  1. CLOPIDOGREL BISULFATE [Suspect]
     Indication: CORONARY ARTERY DISEASE
     Route: 065
  2. ASPIRIN [Suspect]
     Indication: CORONARY ARTERY DISEASE
     Route: 065
  3. FAMOTIDINE [Concomitant]
     Dosage: STRENGTH: 20MG
     Route: 048
  4. SPIRONOLACTONE [Concomitant]
     Dosage: STRENGTH:25MG
     Route: 048
  5. RAMIPRIL [Concomitant]
     Dosage: STRENGTH: 2.5MG
     Route: 048
  6. BISOPROLOL [Concomitant]
     Dosage: STRENGTH: 5MG
     Route: 048
  7. GLIMEPIRIDE [Concomitant]
     Dosage: STRENGTH: 2MG
     Route: 048
  8. DOBUTAMINE [Concomitant]
     Route: 041

REACTIONS (3)
  - Cardiac failure congestive [Unknown]
  - Condition aggravated [Unknown]
  - Sepsis [Unknown]
